FAERS Safety Report 15467232 (Version 2)
Quarter: 2019Q1

REPORT INFORMATION
  Report Type: Spontaneous
  Country: US (occurrence: US)
  Receive Date: 20181005
  Receipt Date: 20190105
  Transmission Date: 20190417
  Serious: No
  Sender: FDA-Public Use
  Company Number: US-BIOGEN-2018BI00639435

PATIENT
  Sex: Female

DRUGS (1)
  1. TECFIDERA [Suspect]
     Active Substance: DIMETHYL FUMARATE
     Indication: MULTIPLE SCLEROSIS
     Dosage: FORM SUBMITTED TO BIOGEN VIA PORTAL. REFER TO BIOGEN REPORT ACAR-09388 - TECFIDERA
     Route: 048

REACTIONS (5)
  - Nausea [Unknown]
  - Flushing [Unknown]
  - Product dose omission [Unknown]
  - Flatulence [Unknown]
  - Eructation [Unknown]
